FAERS Safety Report 21912903 (Version 2)
Quarter: 2023Q2

REPORT INFORMATION
  Report Type: Spontaneous
  Country: US (occurrence: US)
  Receive Date: 20230125
  Receipt Date: 20230601
  Transmission Date: 20230722
  Serious: No
  Sender: FDA-Public Use
  Company Number: US-ALLERGAN-2233198US

PATIENT
  Age: 44 Year
  Sex: Female
  Weight: 65.77 kg

DRUGS (15)
  1. BOTOX [Suspect]
     Active Substance: ONABOTULINUMTOXINA
     Indication: Skin wrinkling
     Dosage: 48 UNITS, SINGLE, EVERY 3 MONTHS
     Route: 030
     Dates: start: 20220307, end: 20220307
  2. BOTOX [Suspect]
     Active Substance: ONABOTULINUMTOXINA
     Indication: Skin wrinkling
     Dosage: SINGLE, EVERY 3 MONTHS
     Dates: start: 20210607, end: 20210607
  3. BOTOX [Suspect]
     Active Substance: ONABOTULINUMTOXINA
     Indication: Skin wrinkling
     Dosage: SINGLE, EVERY 3 MONTHS
     Dates: start: 20210607, end: 20210607
  4. BOTOX [Suspect]
     Active Substance: ONABOTULINUMTOXINA
     Indication: Muscle hypertrophy
     Dosage: SINGLE, EVERY 3 MONTHS
     Dates: start: 20210607, end: 20210607
  5. BOTOX [Suspect]
     Active Substance: ONABOTULINUMTOXINA
     Dosage: SINGLE, EVERY 3 MONTHS
     Dates: start: 20210607, end: 20210607
  6. BOTOX [Suspect]
     Active Substance: ONABOTULINUMTOXINA
     Dosage: UNK, SINGLE
     Dates: start: 20210330, end: 20210330
  7. DYSPORT [Suspect]
     Active Substance: ABOBOTULINUMTOXINA
     Indication: Skin wrinkling
     Dosage: 25 UNITS
     Dates: start: 20230404, end: 20230404
  8. DYSPORT [Suspect]
     Active Substance: ABOBOTULINUMTOXINA
     Dosage: UNK
     Dates: start: 20220103, end: 20220103
  9. DYSPORT [Suspect]
     Active Substance: ABOBOTULINUMTOXINA
     Dosage: UNK
     Dates: start: 20211108, end: 20211108
  10. DYSPORT [Suspect]
     Active Substance: ABOBOTULINUMTOXINA
     Dosage: UNK
     Dates: start: 20211020, end: 20211020
  11. XEOMIN [Suspect]
     Active Substance: INCOBOTULINUMTOXINA
     Indication: Product used for unknown indication
     Dosage: 59 UNITS
     Dates: start: 20230322, end: 20230322
  12. XEOMIN [Suspect]
     Active Substance: INCOBOTULINUMTOXINA
     Dosage: UNK
     Dates: start: 20220201, end: 20220201
  13. PFIZER-BIONTECH COVID-19 VACCINE [Suspect]
     Active Substance: TOZINAMERAN
     Indication: COVID-19 immunisation
     Dosage: UNK, BOOSTER
     Route: 030
     Dates: start: 20211103, end: 20211103
  14. PFIZER-BIONTECH COVID-19 VACCINE [Suspect]
     Active Substance: TOZINAMERAN
     Dosage: UNK, SECOND DOSE
     Route: 030
     Dates: start: 20210412, end: 20210412
  15. PFIZER-BIONTECH COVID-19 VACCINE [Suspect]
     Active Substance: TOZINAMERAN
     Dosage: UNK, FIRST DOSE
     Route: 030
     Dates: start: 20210324, end: 20210324

REACTIONS (7)
  - Injection site irritation [Unknown]
  - Injection site urticaria [Not Recovered/Not Resolved]
  - Injection site pruritus [Not Recovered/Not Resolved]
  - Off label use [Unknown]
  - Drug ineffective [Unknown]
  - Drug resistance [Unknown]
  - Hypersensitivity [Unknown]

NARRATIVE: CASE EVENT DATE: 20210324
